FAERS Safety Report 5624513-X (Version None)
Quarter: 2008Q1

REPORT INFORMATION
  Report Type: 
  Country: None (occurrence: None)
  Receive Date: 20080213
  Receipt Date: 20080204
  Transmission Date: 20080703
  Serious: Yes (Other)
  Sender: FDA-Public Use
  Company Number: US-AMGEN-QUU263823

PATIENT
  Age: 40 Year
  Sex: Female

DRUGS (3)
  1. EPOGEN [Suspect]
     Indication: DIALYSIS
     Dates: start: 20050101, end: 20080101
  2. IRON [Concomitant]
  3. UNSPECIFIED MEDICATION [Concomitant]
     Dates: start: 20071001

REACTIONS (1)
  - NEPHROGENIC SYSTEMIC FIBROSIS [None]
